FAERS Safety Report 23827106 (Version 1)
Quarter: 2024Q2

REPORT INFORMATION
  Report Type: Spontaneous
  Country: US (occurrence: US)
  Receive Date: 20240507
  Receipt Date: 20240507
  Transmission Date: 20240716
  Serious: No
  Sender: FDA-Public Use
  Company Number: US-GLENMARK PHARMACEUTICALS-2024GMK089893

PATIENT

DRUGS (1)
  1. RYALTRIS [Suspect]
     Active Substance: MOMETASONE FUROATE MONOHYDRATE\OLOPATADINE HYDROCHLORIDE
     Indication: Product used for unknown indication
     Dosage: 2 DOSAGE FORM, BID (INSTILL 2 SPRAYS IN EACH NOSTRIL TWICE DAILY AS DIRECTED)
     Route: 045
     Dates: start: 20240322, end: 20240324

REACTIONS (5)
  - Palpitations [Unknown]
  - Feeling abnormal [Unknown]
  - Vision blurred [Unknown]
  - Anxiety [Unknown]
  - Headache [Unknown]
